FAERS Safety Report 6113850-0 (Version None)
Quarter: 2009Q1

REPORT INFORMATION
  Report Type: 
  Country: None (occurrence: None)
  Receive Date: 20090312
  Receipt Date: 20090227
  Transmission Date: 20090719
  Serious: Yes (Death)
  Sender: FDA-Public Use
  Company Number: JP-ABBOTT-09P-087-0561652-00

PATIENT
  Age: 89 Year
  Sex: Male

DRUGS (3)
  1. LEUPLIN SR FOR INJECTION 11.25 MG [Suspect]
     Indication: PROSTATE CANCER STAGE II
     Dates: start: 20070219, end: 20080122
  2. LEUPLIN SR FOR INJECTION 11.25 MG [Suspect]
     Dates: start: 20061225, end: 20070119
  3. TAMSULOSIN HYDROCHLORIDE [Concomitant]
     Indication: BENIGN PROSTATIC HYPERPLASIA
     Route: 048
     Dates: start: 20061225, end: 20071029

REACTIONS (1)
  - MARASMUS [None]
